FAERS Safety Report 13725622 (Version 1)
Quarter: 2017Q3

REPORT INFORMATION
  Report Type: Spontaneous
  Country: US (occurrence: US)
  Receive Date: 20170706
  Receipt Date: 20170706
  Transmission Date: 20171127
  Serious: Yes (Hospitalization)
  Sender: FDA-Public Use
  Company Number: None

PATIENT
  Age: 72 Year
  Sex: Female
  Weight: 56 kg

DRUGS (1)
  1. ALENDRONATE [Suspect]
     Active Substance: ALENDRONATE SODIUM
     Indication: OSTEOPOROSIS
     Dosage: ?          OTHER DOSE:MG;OTHER FREQUENCY: 70 MG ONCE PER WEEK;ORAL?
     Route: 048

REACTIONS (1)
  - Femur fracture [None]

NARRATIVE: CASE EVENT DATE: 20170626
